FAERS Safety Report 8573395-5 (Version None)
Quarter: 2012Q3

REPORT INFORMATION
  Report Type: 
  Country: None (occurrence: None)
  Receive Date: 20120806
  Receipt Date: 20120718
  Transmission Date: 20120928
  Serious: No
  Sender: FDA-Public Use
  Company Number: US-ROXANE LABORATORIES, INC.-2012-RO-01579RO

PATIENT
  Sex: Male
  Weight: 57 kg

DRUGS (2)
  1. CHEMOTHERAPY [Concomitant]
     Indication: PANCREATIC CARCINOMA
  2. HYDROMORPHONE HYDROCHLORIDE [Suspect]
     Indication: PAIN
     Dosage: 48 MG
     Route: 048

REACTIONS (5)
  - DRUG INEFFECTIVE [None]
  - PAIN [None]
  - DECREASED APPETITE [None]
  - MALAISE [None]
  - PRODUCT QUALITY ISSUE [None]
